FAERS Safety Report 6772239-1 (Version None)
Quarter: 2010Q2

REPORT INFORMATION
  Report Type: 
  Country: None (occurrence: None)
  Receive Date: 20100616
  Receipt Date: 20091016
  Transmission Date: 20101027
  Serious: No
  Sender: FDA-Public Use
  Company Number: US-ASTRAZENECA-2009SE20832

PATIENT
  Age: 65 Year
  Sex: Female
  Weight: 54.4 kg

DRUGS (1)
  1. PULMICORT [Suspect]
     Indication: SINUSITIS
     Route: 055
     Dates: start: 20091016

REACTIONS (2)
  - NASAL DISCOMFORT [None]
  - OFF LABEL USE [None]
